FAERS Safety Report 25045784 (Version 1)
Quarter: 2025Q1

REPORT INFORMATION
  Report Type: Spontaneous
  Country: US (occurrence: US)
  Receive Date: 20250306
  Receipt Date: 20250306
  Transmission Date: 20250409
  Serious: Yes (Other)
  Sender: DR REDDYS
  Company Number: US-DRL-USA-USA/2025/03/003465

PATIENT
  Age: 50 Year
  Sex: Male

DRUGS (12)
  1. DECITABINE [Suspect]
     Active Substance: DECITABINE
     Indication: Chronic myeloid leukaemia
  2. CLOFARABINE [Suspect]
     Active Substance: CLOFARABINE
     Indication: Bone marrow conditioning regimen
  3. MELPHALAN [Suspect]
     Active Substance: MELPHALAN
     Indication: Bone marrow conditioning regimen
  4. PONATINIB [Suspect]
     Active Substance: PONATINIB
     Indication: Chronic myeloid leukaemia
  5. VENETOCLAX [Suspect]
     Active Substance: VENETOCLAX
     Indication: Chronic myeloid leukaemia
  6. VENETOCLAX [Suspect]
     Active Substance: VENETOCLAX
  7. VENETOCLAX [Suspect]
     Active Substance: VENETOCLAX
  8. CYTOXAN [Suspect]
     Active Substance: CYCLOPHOSPHAMIDE
     Indication: Bone marrow conditioning regimen
  9. CYTOXAN [Suspect]
     Active Substance: CYCLOPHOSPHAMIDE
  10. FLUDARABINE [Concomitant]
     Active Substance: FLUDARABINE PHOSPHATE
     Indication: Bone marrow conditioning regimen
  11. PREDNISONE [Concomitant]
     Active Substance: PREDNISONE
     Indication: Chronic myeloid leukaemia
  12. VINCRISTINE [Concomitant]
     Active Substance: VINCRISTINE
     Indication: Chronic myeloid leukaemia

REACTIONS (7)
  - Graft versus host disease [Unknown]
  - Hypertransaminasaemia [Unknown]
  - Febrile neutropenia [Unknown]
  - Mucosal inflammation [Unknown]
  - Drug ineffective for unapproved indication [Unknown]
  - Product use in unapproved indication [Unknown]
  - Product use issue [Unknown]
